FAERS Safety Report 5276883-2 (Version None)
Quarter: 2007Q1

REPORT INFORMATION
  Report Type: 
  Country: None (occurrence: None)
  Receive Date: 20070327
  Receipt Date: 20070322
  Transmission Date: 20070707
  Serious: Yes (Hospitalization)
  Sender: FDA-Public Use
  Company Number: FR-AVENTIS-200613005FR

PATIENT
  Age: 40 Year
  Sex: Female
  Weight: 108 kg

DRUGS (3)
  1. PYOSTACINE [Suspect]
     Route: 048
     Dates: start: 20060731, end: 20060731
  2. LOVENOX [Suspect]
     Indication: DRUG USE FOR UNKNOWN INDICATION
     Route: 058
     Dates: start: 20060730, end: 20060730
  3. DAFALGAN                           /00020001/ [Suspect]
     Indication: DRUG USE FOR UNKNOWN INDICATION
     Route: 048
     Dates: start: 20060731, end: 20060801

REACTIONS (6)
  - ALANINE AMINOTRANSFERASE INCREASED [None]
  - ASPARTATE AMINOTRANSFERASE INCREASED [None]
  - GAMMA-GLUTAMYLTRANSFERASE INCREASED [None]
  - LIVER DISORDER [None]
  - PRURITUS [None]
  - RASH GENERALISED [None]
